FAERS Safety Report 16045071 (Version 1)
Quarter: 2019Q1

REPORT INFORMATION
  Report Type: Spontaneous
  Country: US (occurrence: US)
  Receive Date: 20190307
  Receipt Date: 20190307
  Transmission Date: 20190418
  Serious: Yes (Other)
  Sender: FDA-Public Use
  Company Number: PHHY2019US048077

PATIENT

DRUGS (18)
  1. FUROSEMIDE. [Suspect]
     Active Substance: FUROSEMIDE
     Indication: FOETAL EXPOSURE DURING PREGNANCY
     Route: 064
  2. INSULIN [Suspect]
     Active Substance: INSULIN NOS
     Indication: FOETAL EXPOSURE DURING PREGNANCY
     Route: 064
  3. HEPARIN [Suspect]
     Active Substance: HEPARIN SODIUM
     Indication: FOETAL EXPOSURE DURING PREGNANCY
     Route: 064
  4. BETAMETHASONE. [Suspect]
     Active Substance: BETAMETHASONE
     Indication: FOETAL EXPOSURE DURING PREGNANCY
     Route: 064
  5. SUCCINYLCHOLINE CHLORIDE. [Suspect]
     Active Substance: SUCCINYLCHOLINE CHLORIDE
     Indication: FOETAL EXPOSURE DURING PREGNANCY
     Dosage: MATERNAL DOSE: 90MG
     Route: 064
  6. MAGNESIUM [Suspect]
     Active Substance: MAGNESIUM
     Indication: FOETAL EXPOSURE DURING PREGNANCY
     Route: 064
  7. FENTANYL. [Suspect]
     Active Substance: FENTANYL
     Indication: FOETAL EXPOSURE DURING PREGNANCY
     Dosage: MATERNAL DOSE: 250UG
     Route: 064
  8. SEVOFLURANE. [Suspect]
     Active Substance: SEVOFLURANE
     Indication: FOETAL EXPOSURE DURING PREGNANCY
     Route: 064
  9. METOPROLOL. [Suspect]
     Active Substance: METOPROLOL
     Indication: FOETAL EXPOSURE DURING PREGNANCY
     Route: 064
  10. NOREPINEPHRINE. [Suspect]
     Active Substance: NOREPINEPHRINE
     Indication: FOETAL EXPOSURE DURING PREGNANCY
     Route: 064
  11. SODIUM CITRATE. [Suspect]
     Active Substance: SODIUM CITRATE
     Indication: FOETAL EXPOSURE DURING PREGNANCY
     Route: 064
  12. PROPOFOL. [Suspect]
     Active Substance: PROPOFOL
     Indication: FOETAL EXPOSURE DURING PREGNANCY
     Dosage: MATERNAL DOSE: 50MG
     Route: 064
  13. SPIRONOLACTONE. [Suspect]
     Active Substance: SPIRONOLACTONE
     Indication: FOETAL EXPOSURE DURING PREGNANCY
     Dosage: MATERNAL DOSE: 50 MG DAILY
     Route: 064
  14. POTASSIUM IODIDE. [Suspect]
     Active Substance: POTASSIUM IODIDE
     Indication: FOETAL EXPOSURE DURING PREGNANCY
     Route: 064
  15. MILRINONE [Suspect]
     Active Substance: MILRINONE
     Indication: FOETAL EXPOSURE DURING PREGNANCY
     Dosage: MATERNAL DOSE: 0.25UG
     Route: 064
  16. EPINEPHRINE. [Suspect]
     Active Substance: EPINEPHRINE
     Indication: FOETAL EXPOSURE DURING PREGNANCY
     Dosage: MATERNAL DOSE: 20UG
     Route: 064
  17. DIGOXIN. [Suspect]
     Active Substance: DIGOXIN
     Indication: FOETAL EXPOSURE DURING PREGNANCY
     Route: 064
  18. FAMOTIDINE. [Suspect]
     Active Substance: FAMOTIDINE
     Indication: FOETAL EXPOSURE DURING PREGNANCY
     Route: 064

REACTIONS (2)
  - Premature baby [Unknown]
  - Foetal exposure during pregnancy [Unknown]
